FAERS Safety Report 6368588-1 (Version None)
Quarter: 2009Q3

REPORT INFORMATION
  Report Type: 
  Country: None (occurrence: None)
  Receive Date: 20090922
  Receipt Date: 20090827
  Transmission Date: 20100115
  Serious: No
  Sender: FDA-Public Use
  Company Number: US-BRISTOL-MYERS SQUIBB COMPANY-14758338

PATIENT
  Sex: Male

DRUGS (2)
  1. BUSPAR [Suspect]
  2. ATRIPLA [Concomitant]

REACTIONS (1)
  - DIARRHOEA [None]
